FAERS Safety Report 26179753 (Version 1)
Quarter: 2025Q4

REPORT INFORMATION
  Report Type: Spontaneous
  Country: US (occurrence: None)
  Receive Date: 20251218
  Receipt Date: 20251218
  Transmission Date: 20260118
  Serious: Yes (Life-Threatening)
  Sender: FDA-CTU
  Company Number: None

PATIENT
  Age: 48 Year
  Sex: Male
  Weight: 93.6 kg

DRUGS (1)
  1. CEFTRIAXONE SODIUM [Suspect]
     Active Substance: CEFTRIAXONE SODIUM
     Indication: Pneumonia
     Dosage: 2  GRAM(S) DAILY INTRAVENOUS BOLUS
     Route: 040
     Dates: start: 20251201, end: 20251201

REACTIONS (5)
  - Seizure [None]
  - Hypoxia [None]
  - Urticaria [None]
  - Hypotension [None]
  - Anaphylactic shock [None]

NARRATIVE: CASE EVENT DATE: 20251201
